FAERS Safety Report 10253248 (Version 1)
Quarter: 2014Q2

REPORT INFORMATION
  Report Type: Spontaneous
  Country: US (occurrence: None)
  Receive Date: 20140619
  Receipt Date: 20140619
  Transmission Date: 20141212
  Serious: Yes (Other)
  Sender: FDA-Public Use
  Company Number: None

PATIENT
  Age: 58 Year
  Sex: Female
  Weight: 71.22 kg

DRUGS (1)
  1. LEVOTHYROXINE [Suspect]
     Indication: GOITRE
     Dosage: 1 TABLE, ONCE DAILY, TAKEN BY MOUTH
     Route: 048
     Dates: start: 20140419, end: 20140612

REACTIONS (10)
  - Rash [None]
  - Pruritus generalised [None]
  - Dizziness [None]
  - Dizziness [None]
  - Palpitations [None]
  - Pallor [None]
  - Hyperhidrosis [None]
  - Feeling hot [None]
  - Heart rate increased [None]
  - Product substitution issue [None]
